FAERS Safety Report 7535022-5 (Version None)
Quarter: 2011Q2

REPORT INFORMATION
  Report Type: 
  Country: None (occurrence: None)
  Receive Date: 20110609
  Receipt Date: 20110602
  Transmission Date: 20111010
  Serious: No
  Sender: FDA-Public Use
  Company Number: US-BIOGENIDEC-2011BI016161

PATIENT
  Age: 52 Year
  Sex: Female

DRUGS (1)
  1. TYSABRI [Suspect]
     Indication: MULTIPLE SCLEROSIS
     Route: 042
     Dates: start: 20100316

REACTIONS (10)
  - HYPOAESTHESIA [None]
  - MUSCULOSKELETAL CHEST PAIN [None]
  - GASTROOESOPHAGEAL REFLUX DISEASE [None]
  - NEURALGIA [None]
  - AUTOIMMUNE THYROIDITIS [None]
  - GALLBLADDER DISORDER [None]
  - GOITRE [None]
  - GALLBLADDER OPERATION [None]
  - MUSCULAR WEAKNESS [None]
  - CHOLELITHIASIS [None]
